FAERS Safety Report 7784120-X (Version None)
Quarter: 2011Q3

REPORT INFORMATION
  Report Type: 
  Country: None (occurrence: None)
  Receive Date: 20110928
  Receipt Date: 20110926
  Transmission Date: 20111222
  Serious: Yes (Death, Hospitalization, Other)
  Sender: FDA-Public Use
  Company Number: NO-BRISTOL-MYERS SQUIBB COMPANY-15635386

PATIENT
  Age: 84 Year
  Sex: Male

DRUGS (3)
  1. ASPIRIN [Suspect]
     Indication: ESSENTIAL THROMBOCYTHAEMIA
     Dosage: CUM DOSAGE:432160MG
     Route: 048
     Dates: start: 19990624, end: 20061114
  2. HYDROXYUREA [Suspect]
     Indication: ESSENTIAL THROMBOCYTHAEMIA
     Dosage: CUM DOSE:2677215MG,20-29OCT1 500MG/D,17SP-19OC1 500MG 2/D,29OCT1-30AG6 785MG/D,31AG6-6OC8 715MG/D
     Route: 048
     Dates: start: 20010917, end: 20101110
  3. WARFARIN SODIUM [Suspect]
     Indication: ESSENTIAL THROMBOCYTHAEMIA
     Dosage: 14NOV06-10SEP10(INT)(1397D) 2.5MG 22SEP10(RESTARTED)-UNK 5MG
     Route: 048
     Dates: start: 20061114

REACTIONS (2)
  - GASTROINTESTINAL HAEMORRHAGE [None]
  - DEATH [None]
